FAERS Safety Report 9174321 (Version 2)
Quarter: 2014Q1

REPORT INFORMATION
  Report Type: Report from Study
  Country: US (occurrence: US)
  Receive Date: 20130320
  Receipt Date: 20140122
  Transmission Date: 20141002
  Serious: Yes (Other)
  Sender: FDA-Public Use
  Company Number: US-NAPPMUNDI-USA-2013-0099927

PATIENT
  Sex: Female

DRUGS (1)
  1. OXYCONTIN (NDA 22-272) [Suspect]
     Indication: PRODUCT USED FOR UNKNOWN INDICATION
     Dosage: 40 MG, Q12H
     Route: 048
     Dates: start: 201105

REACTIONS (7)
  - Syringomyelia [Unknown]
  - Musculoskeletal disorder [Unknown]
  - Impaired work ability [Unknown]
  - Influenza [Unknown]
  - Headache [Unknown]
  - Asthenia [Unknown]
  - Feeling abnormal [Unknown]
